FAERS Safety Report 12848471 (Version 1)
Quarter: 2016Q4

REPORT INFORMATION
  Report Type: Spontaneous
  Country: US (occurrence: US)
  Receive Date: 20161014
  Receipt Date: 20161014
  Transmission Date: 20170207
  Serious: No
  Sender: FDA-Public Use
  Company Number: US-JNJFOC-20160813855

PATIENT
  Sex: Male

DRUGS (2)
  1. TYLENOL 8 HR ARTHRITIS PAIN [Suspect]
     Active Substance: ACETAMINOPHEN
     Route: 048
  2. TYLENOL 8 HR ARTHRITIS PAIN [Suspect]
     Active Substance: ACETAMINOPHEN
     Indication: PAIN
     Dosage: 2 TABLETS, 1 HRS AFTER LAST DOSE, USUALLY EVERY 8 HRS; TODAY, TOOK IT AT 10AM AND 11AM BY ACCIDENT
     Route: 048

REACTIONS (2)
  - Extra dose administered [Unknown]
  - Drug effect incomplete [Unknown]
